FAERS Safety Report 10098489 (Version 1)
Quarter: 2014Q2

REPORT INFORMATION
  Report Type: Spontaneous
  Country: CA (occurrence: CA)
  Receive Date: 20140423
  Receipt Date: 20140423
  Transmission Date: 20141212
  Serious: Yes (Other)
  Sender: FDA-Public Use
  Company Number: CA-AMGEN-CANSP2014028129

PATIENT
  Age: 91 Year
  Sex: Female

DRUGS (4)
  1. PROLIA [Suspect]
     Indication: OSTEOPOROSIS POSTMENOPAUSAL
     Dosage: 60 MG/ML, UNK
     Route: 065
     Dates: start: 20131115
  2. PENICILLIN                         /00000901/ [Concomitant]
     Indication: OROPHARYNGEAL PAIN
     Dosage: UNK
     Route: 065
     Dates: start: 20131115
  3. SYNTHROID [Concomitant]
     Route: 065
  4. PANTOPRAZOLE [Concomitant]
     Route: 065

REACTIONS (3)
  - Hypersensitivity [Recovered/Resolved]
  - Oedema [Recovered/Resolved]
  - Pruritus [Recovered/Resolved]
